FAERS Safety Report 19828590 (Version 1)
Quarter: 2021Q3

REPORT INFORMATION
  Report Type: Report from Study
  Country: US (occurrence: US)
  Receive Date: 20210914
  Receipt Date: 20210914
  Transmission Date: 20211014
  Serious: Yes (Death, Other)
  Sender: FDA-Public Use
  Company Number: US-GLAXOSMITHKLINE-US2020AMR225394

PATIENT
  Age: 61 Year
  Sex: Female

DRUGS (1)
  1. BELANTAMAB MAFODOTIN. [Suspect]
     Active Substance: BELANTAMAB MAFODOTIN
     Indication: PLASMA CELL MYELOMA
     Dosage: UNK
     Route: 042
     Dates: start: 20201210, end: 20201211

REACTIONS (15)
  - Death [Fatal]
  - Keratopathy [Unknown]
  - Hypermetropia [Unknown]
  - Visual impairment [Unknown]
  - Myopia [Unknown]
  - Macular fibrosis [Unknown]
  - Vitreous degeneration [Unknown]
  - Visual acuity reduced [Unknown]
  - Intraocular lens implant [Unknown]
  - Retinopathy hypertensive [Unknown]
  - Keratitis [Unknown]
  - Condition aggravated [Unknown]
  - Astigmatism [Unknown]
  - Anisometropia [Unknown]
  - Presbyopia [Unknown]

NARRATIVE: CASE EVENT DATE: 20210414
